FAERS Safety Report 5377737-3 (Version None)
Quarter: 2007Q3

REPORT INFORMATION
  Report Type: 
  Country: None (occurrence: None)
  Receive Date: 20070703
  Receipt Date: 20070622
  Transmission Date: 20080115
  Serious: Yes (Other)
  Sender: FDA-Public Use
  Company Number: US-PFIZER INC-2007051178

PATIENT
  Sex: Female
  Weight: 58 kg

DRUGS (5)
  1. SUTENT [Suspect]
     Indication: SARCOMA UTERUS
     Route: 048
     Dates: start: 20070423, end: 20070617
  2. GELCLAIR [Concomitant]
  3. FOSAMAX [Concomitant]
  4. LOPERAMIDE HYDROCHLORIDE [Concomitant]
  5. ACETYLSALICYLIC ACID SRT [Concomitant]

REACTIONS (1)
  - PRESYNCOPE [None]
